FAERS Safety Report 5838409-1 (Version None)
Quarter: 2008Q3

REPORT INFORMATION
  Report Type: 
  Country: None (occurrence: None)
  Receive Date: 20080808
  Receipt Date: 20080729
  Transmission Date: 20090109
  Serious: Yes (Other)
  Sender: FDA-Public Use
  Company Number: PHBS2008US05230

PATIENT
  Age: 62 Year
  Sex: Male

DRUGS (1)
  1. DEFERASIROX [Suspect]
     Indication: SERUM FERRITIN INCREASED
     Dosage: 2 G, UNK

REACTIONS (7)
  - BLOOD CREATININE INCREASED [None]
  - DRUG HYPERSENSITIVITY [None]
  - EOSINOPHIL COUNT [None]
  - KIDNEY FIBROSIS [None]
  - NEPHRITIS INTERSTITIAL [None]
  - PROTEINURIA [None]
  - RENAL IMPAIRMENT [None]
